FAERS Safety Report 17441355 (Version 2)
Quarter: 2020Q2

REPORT INFORMATION
  Report Type: Report from Study
  Country: US (occurrence: US)
  Receive Date: 20200220
  Receipt Date: 20200427
  Transmission Date: 20200713
  Serious: Yes (Other)
  Sender: FDA-Public Use
  Company Number: US-BIOGEN-2020BI00840973

PATIENT
  Sex: Female

DRUGS (17)
  1. AMLODIPINE [Concomitant]
     Active Substance: AMLODIPINE BESYLATE
     Indication: PRODUCT USED FOR UNKNOWN INDICATION
     Route: 048
  2. MIRABEGRON [Concomitant]
     Active Substance: MIRABEGRON
     Indication: PRODUCT USED FOR UNKNOWN INDICATION
     Route: 048
  3. ESCITALOPRAM [Concomitant]
     Active Substance: ESCITALOPRAM OXALATE
     Indication: PRODUCT USED FOR UNKNOWN INDICATION
     Route: 048
  4. LURASIDONE [Concomitant]
     Active Substance: LURASIDONE
     Indication: PRODUCT USED FOR UNKNOWN INDICATION
     Route: 048
  5. CELECOXIB. [Concomitant]
     Active Substance: CELECOXIB
     Indication: PRODUCT USED FOR UNKNOWN INDICATION
     Route: 048
  6. MECLIZINE [Concomitant]
     Active Substance: MECLIZINE HYDROCHLORIDE
     Indication: PRODUCT USED FOR UNKNOWN INDICATION
     Dosage: PRN
     Route: 048
  7. DALFAMPRIDINE. [Suspect]
     Active Substance: DALFAMPRIDINE
     Indication: PRODUCT USED FOR UNKNOWN INDICATION
     Route: 048
  8. GABAPENTIN. [Concomitant]
     Active Substance: GABAPENTIN
     Indication: PRODUCT USED FOR UNKNOWN INDICATION
     Route: 048
  9. HYDROCORTISONE. [Concomitant]
     Active Substance: HYDROCORTISONE
     Indication: PRODUCT USED FOR UNKNOWN INDICATION
     Route: 048
  10. PANTOPRAZOLE [Concomitant]
     Active Substance: PANTOPRAZOLE
     Indication: PRODUCT USED FOR UNKNOWN INDICATION
     Route: 048
  11. TRAMADOL. [Concomitant]
     Active Substance: TRAMADOL
     Indication: PRODUCT USED FOR UNKNOWN INDICATION
     Route: 065
  12. VITAMIN D3 [Concomitant]
     Active Substance: CHOLECALCIFEROL
     Indication: PRODUCT USED FOR UNKNOWN INDICATION
     Route: 048
  13. HYDROCODONE/ACETAMINOPHEN [Concomitant]
     Active Substance: ACETAMINOPHEN\HYDROCODONE
     Indication: PRODUCT USED FOR UNKNOWN INDICATION
     Dosage: 5MG/325MG PRN
     Route: 048
  14. LINZESS [Concomitant]
     Active Substance: LINACLOTIDE
     Indication: PRODUCT USED FOR UNKNOWN INDICATION
     Route: 048
  15. METHYLPHENIDATE. [Concomitant]
     Active Substance: METHYLPHENIDATE
     Indication: PRODUCT USED FOR UNKNOWN INDICATION
     Route: 048
  16. TYSABRI [Suspect]
     Active Substance: NATALIZUMAB
     Indication: MULTIPLE SCLEROSIS
     Dosage: INFUSED OVER ONE HOUR
     Route: 042
  17. TIZANIDINE. [Concomitant]
     Active Substance: TIZANIDINE
     Indication: PRODUCT USED FOR UNKNOWN INDICATION
     Route: 048

REACTIONS (2)
  - Hemiplegia [Unknown]
  - Muscular weakness [Unknown]
